FAERS Safety Report 16863493 (Version 6)
Quarter: 2021Q2

REPORT INFORMATION
  Report Type: Report from Study
  Country: US (occurrence: US)
  Receive Date: 20190927
  Receipt Date: 20210416
  Transmission Date: 20210716
  Serious: Yes (Life-Threatening, Other)
  Sender: FDA-Public Use
  Company Number: PHEH2019US039748

PATIENT
  Age: 10 Year
  Sex: Male
  Weight: 43.6 kg

DRUGS (5)
  1. KYMRIAH [Suspect]
     Active Substance: TISAGENLECLEUCEL
     Indication: B-CELL TYPE ACUTE LEUKAEMIA
     Dosage: 25 ML, ONCE/SINGLE (2.2 X 10^6 CD 3/KG)
     Route: 042
     Dates: start: 20190128, end: 20190128
  2. KYMRIAH [Suspect]
     Active Substance: TISAGENLECLEUCEL
     Dosage: 1 DF, QD (INTO BLOODSTREAM VIA VEIN)
     Route: 042
  3. KYMRIAH [Suspect]
     Active Substance: TISAGENLECLEUCEL
     Dosage: ONCE/SINGLE
     Route: 041
     Dates: start: 20200702
  4. CYCLOPHOSPHAMIDE. [Concomitant]
     Active Substance: CYCLOPHOSPHAMIDE
     Indication: CHEMOTHERAPY
     Dosage: UNK
     Route: 065
  5. FLUDARABINE [Concomitant]
     Active Substance: FLUDARABINE PHOSPHATE
     Indication: CHEMOTHERAPY
     Dosage: UNK
     Route: 065

REACTIONS (12)
  - B-lymphocyte count abnormal [Unknown]
  - Hypotension [Unknown]
  - Weight increased [Unknown]
  - BK virus infection [Unknown]
  - Pyrexia [Recovered/Resolved]
  - Hepatotoxicity [Unknown]
  - Hypogammaglobulinaemia [Unknown]
  - Off label use [Unknown]
  - Hypoxia [Unknown]
  - Cytokine release syndrome [Recovered/Resolved]
  - Acute lymphocytic leukaemia recurrent [Unknown]
  - Cytomegalovirus infection [Unknown]

NARRATIVE: CASE EVENT DATE: 20190204
